FAERS Safety Report 13935861 (Version 1)
Quarter: 2017Q3

REPORT INFORMATION
  Report Type: Spontaneous
  Country: US (occurrence: US)
  Receive Date: 20170903
  Receipt Date: 20170903
  Transmission Date: 20171127
  Serious: Yes (Disabling)
  Sender: FDA-Public Use
  Company Number: None

PATIENT
  Age: 40 Year
  Sex: Female
  Weight: 63 kg

DRUGS (3)
  1. ZYRTEC [Suspect]
     Active Substance: CETIRIZINE HYDROCHLORIDE
     Indication: MULTIPLE ALLERGIES
     Dosage: ?          QUANTITY:1 TABLET(S);?AT BEDTIME ORAL
     Route: 048
  2. TOPAMAX [Concomitant]
     Active Substance: TOPIRAMATE
  3. B COMPLEX MAGNESIUM [Concomitant]

REACTIONS (7)
  - Pruritus generalised [None]
  - Impaired work ability [None]
  - Panic reaction [None]
  - Sleep disorder [None]
  - Withdrawal syndrome [None]
  - Product label issue [None]
  - Drug dose omission [None]

NARRATIVE: CASE EVENT DATE: 20170903
